FAERS Safety Report 9759564 (Version 1)
Quarter: 2013Q4

REPORT INFORMATION
  Report Type: Spontaneous
  Country: US (occurrence: US)
  Receive Date: 20131216
  Receipt Date: 20131216
  Transmission Date: 20140711
  Serious: No
  Sender: FDA-Public Use
  Company Number: US-GILEAD-2010-0028084

PATIENT
  Sex: Male
  Weight: 89.36 kg

DRUGS (9)
  1. LETAIRIS [Suspect]
     Indication: PULMONARY ARTERIAL HYPERTENSION
     Route: 048
     Dates: start: 20090709
  2. REVATIO [Concomitant]
  3. SPIRONOLACTONE [Concomitant]
  4. LASIX [Concomitant]
  5. COREG [Concomitant]
  6. ZOCOR [Concomitant]
  7. ZOLOFT [Concomitant]
  8. AMBIEN [Concomitant]
  9. MULTIVITAMIN [Concomitant]

REACTIONS (1)
  - Nasal congestion [Unknown]
